FAERS Safety Report 22240566 (Version 1)
Quarter: 2023Q2

REPORT INFORMATION
  Report Type: Spontaneous
  Country: US (occurrence: None)
  Receive Date: 20230421
  Receipt Date: 20230421
  Transmission Date: 20230721
  Serious: Yes (Hospitalization)
  Sender: FDA-Public Use
  Company Number: None

PATIENT
  Age: 58 Year
  Sex: Female
  Weight: 54 kg

DRUGS (3)
  1. XARELTO [Suspect]
     Active Substance: RIVAROXABAN
     Indication: Deep vein thrombosis
     Dosage: 20 MG DAILY ORAL?
     Route: 048
     Dates: start: 20210423, end: 20230323
  2. TAMOXIFEN [Concomitant]
     Active Substance: TAMOXIFEN
     Dates: start: 20141001, end: 20181231
  3. ANASTROZOLE [Concomitant]
     Active Substance: ANASTROZOLE
     Dates: start: 20190101

REACTIONS (4)
  - Deep vein thrombosis [None]
  - Deep vein thrombosis [None]
  - Jugular vein thrombosis [None]
  - Treatment failure [None]

NARRATIVE: CASE EVENT DATE: 20230323
